FAERS Safety Report 7321359-1 (Version None)
Quarter: 2011Q1

REPORT INFORMATION
  Report Type: 
  Country: None (occurrence: None)
  Receive Date: 20110228
  Receipt Date: 20100224
  Transmission Date: 20110831
  Serious: Yes (Other)
  Sender: FDA-Public Use
  Company Number: US-PFIZER INC-2010024397

PATIENT
  Sex: Male
  Weight: 79.819 kg

DRUGS (4)
  1. TAMSULOSIN [Concomitant]
     Indication: ARRHYTHMIA
     Dosage: UNK
  2. GEODON [Suspect]
     Indication: BIPOLAR DISORDER
     Dosage: FREQUENCY: 2X/DAY,
     Route: 048
     Dates: start: 20060101
  3. METOPROLOL [Concomitant]
     Dosage: UNK
  4. PRAVASTATIN [Concomitant]
     Dosage: 80 MG, UNK

REACTIONS (1)
  - TARDIVE DYSKINESIA [None]
